FAERS Safety Report 6184088-6 (Version None)
Quarter: 2009Q2

REPORT INFORMATION
  Report Type: 
  Country: None (occurrence: None)
  Receive Date: 20090508
  Receipt Date: 20090505
  Transmission Date: 20091009
  Serious: Yes (Hospitalization)
  Sender: FDA-Public Use
  Company Number: TR-BAYER-200919953GPV

PATIENT
  Age: 49 Year
  Sex: Female

DRUGS (1)
  1. AVELOX [Suspect]
     Indication: LOWER RESPIRATORY TRACT INFECTION
     Dosage: TOTAL DAILY DOSE: 400 MG  UNIT DOSE: 400 MG
     Route: 048
     Dates: start: 20090429, end: 20090429

REACTIONS (8)
  - ANAPHYLACTIC REACTION [None]
  - BLISTER [None]
  - ERYTHEMA [None]
  - HYPERSENSITIVITY [None]
  - PYREXIA [None]
  - RASH [None]
  - TACHYCARDIA [None]
  - URTICARIA [None]
